FAERS Safety Report 9831476 (Version 1)
Quarter: 2014Q1

REPORT INFORMATION
  Report Type: Spontaneous
  Country: GB (occurrence: GB)
  Receive Date: 20140121
  Receipt Date: 20140121
  Transmission Date: 20141002
  Serious: Yes (Other)
  Sender: FDA-Public Use
  Company Number: GB-AMGEN-GBRSP2014003053

PATIENT
  Age: 83 Year
  Sex: Female
  Weight: 45 kg

DRUGS (14)
  1. PROLIA [Suspect]
     Indication: OSTEOPOROSIS
     Dosage: 60 MG, UNK
     Route: 058
     Dates: start: 20130120, end: 20130120
  2. ADCAL D3 [Concomitant]
     Dosage: 1 DF, BID
  3. AMLODIPINE [Concomitant]
     Dosage: 5 MG, QD
  4. CARBOCISTEINE [Concomitant]
     Dosage: 275 MG, BID
  5. CLARITHROMYCIN [Concomitant]
     Dosage: 500 MG, BID
     Dates: start: 20130227, end: 20130306
  6. ERYTHROMYCIN [Concomitant]
     Dosage: 250 MG, Q6H
     Dates: start: 20130318, end: 20130525
  7. HYPROMELLOSE [Concomitant]
  8. INDAPAMIDE [Concomitant]
     Dosage: 1.5 MG, QD
  9. LACTULOSE [Concomitant]
     Dosage: 10 ML, BID
  10. LATANOPROST [Concomitant]
     Dosage: 1 DF, QD
  11. LEVOTHYROXINE [Concomitant]
     Dosage: 75 MUG, QD
  12. METOCLOPRAMIDE [Concomitant]
     Dosage: TID10 MG, TID
  13. OMEPRAZOLE [Concomitant]
     Dosage: BID20 MG, BID
  14. FLUTICASONE W/SALMETEROL [Concomitant]
     Dosage: 2 DF, BID

REACTIONS (3)
  - Renal failure acute [Not Recovered/Not Resolved]
  - Thirst [Not Recovered/Not Resolved]
  - Renal failure [Not Recovered/Not Resolved]
